FAERS Safety Report 6240337-7 (Version None)
Quarter: 2009Q2

REPORT INFORMATION
  Report Type: 
  Country: None (occurrence: None)
  Receive Date: 20090623
  Receipt Date: 20080724
  Transmission Date: 20091009
  Serious: No
  Sender: FDA-Public Use
  Company Number: US-ASTRAZENECA-2008UW15424

PATIENT
  Age: 14 Month
  Sex: Male
  Weight: 10.9 kg

DRUGS (3)
  1. PULMICORT RESPULES [Suspect]
     Indication: ASTHMA
     Dosage: 0.5MG/2ML
     Route: 055
     Dates: start: 20080617
  2. ALBUTEROL [Concomitant]
  3. VACCINATIONS [Concomitant]

REACTIONS (2)
  - DERMATITIS DIAPER [None]
  - VARICELLA [None]
